FAERS Safety Report 25717905 (Version 1)
Quarter: 2025Q3

REPORT INFORMATION
  Report Type: Spontaneous
  Country: CN (occurrence: CN)
  Receive Date: 20250822
  Receipt Date: 20250822
  Transmission Date: 20251020
  Serious: Yes (Hospitalization)
  Sender: EISAI
  Company Number: CN-Eisai-EC-2025-195427

PATIENT
  Age: 62 Year
  Sex: Female
  Weight: 55 kg

DRUGS (1)
  1. HALAVEN [Suspect]
     Active Substance: ERIBULIN MESYLATE
     Indication: Breast cancer
     Dates: start: 20250725

REACTIONS (3)
  - White blood cell count decreased [Unknown]
  - Neutrophil count decreased [Unknown]
  - Myelosuppression [Unknown]

NARRATIVE: CASE EVENT DATE: 20250101
